FAERS Safety Report 6706384-3 (Version None)
Quarter: 2010Q2

REPORT INFORMATION
  Report Type: 
  Country: None (occurrence: None)
  Receive Date: 20100430
  Receipt Date: 20100430
  Transmission Date: 20101027
  Serious: Yes (Other)
  Sender: FDA-Public Use
  Company Number: None

PATIENT
  Age: 16 Year
  Sex: Male
  Weight: 48.5349 kg

DRUGS (2)
  1. VYVANSE [Suspect]
     Indication: ATTENTION DEFICIT/HYPERACTIVITY DISORDER
     Dosage: 20MG CAP 1X/DAILY IN MORN PO
     Route: 048
     Dates: start: 20091203, end: 20100218
  2. VYVANSE [Suspect]
     Indication: ATTENTION DEFICIT/HYPERACTIVITY DISORDER
     Dosage: 30MG CAP 1X/DAILY IN MORN PO
     Route: 048
     Dates: start: 20100219, end: 20100331

REACTIONS (3)
  - AGGRESSION [None]
  - ANGER [None]
  - WEIGHT DECREASED [None]
